FAERS Safety Report 25380517 (Version 1)
Quarter: 2025Q2

REPORT INFORMATION
  Report Type: Spontaneous
  Country: CA (occurrence: BR)
  Receive Date: 20250530
  Receipt Date: 20250530
  Transmission Date: 20250717
  Serious: Yes (Other)
  Sender: BAYER HEALTHCARE PHARMACEUTICALS INC.
  Company Number: CA-BAYER-2025A072112

PATIENT
  Age: 69 Year
  Sex: Male
  Weight: 49 kg

DRUGS (3)
  1. STIVARGA [Suspect]
     Active Substance: REGORAFENIB MONOHYDRATE
     Indication: Gastrointestinal cancer metastatic
     Dosage: 160 MG, QD
     Dates: start: 20250101, end: 20250522
  2. STIVARGA [Suspect]
     Active Substance: REGORAFENIB MONOHYDRATE
     Indication: Metastases to peritoneum
  3. PURAN [Concomitant]
     Active Substance: LEVOTHYROXINE SODIUM
     Indication: Thyroid disorder

REACTIONS (1)
  - Metastases to peritoneum [Unknown]

NARRATIVE: CASE EVENT DATE: 20250522
